FAERS Safety Report 7483051-2 (Version None)
Quarter: 2011Q2

REPORT INFORMATION
  Report Type: 
  Country: None (occurrence: None)
  Receive Date: 20110516
  Receipt Date: 20110429
  Transmission Date: 20111010
  Serious: Yes (Other)
  Sender: FDA-Public Use
  Company Number: IT-PFIZER INC-2011094046

PATIENT
  Age: 47 Year
  Sex: Female

DRUGS (1)
  1. CHIMONO [Suspect]
     Dosage: 400 MG, FREQUENCY UNKNOWN
     Route: 048
     Dates: start: 20110316, end: 20110319

REACTIONS (2)
  - FACE OEDEMA [None]
  - HYPERAEMIA [None]
